FAERS Safety Report 8514808-4 (Version None)
Quarter: 2012Q3

REPORT INFORMATION
  Report Type: 
  Country: None (occurrence: None)
  Receive Date: 20120717
  Receipt Date: 20120712
  Transmission Date: 20120928
  Serious: Yes (Other)
  Sender: FDA-Public Use
  Company Number: DE-ROCHE-1087943

PATIENT
  Age: 64 Year
  Sex: Female

DRUGS (2)
  1. CELLCEPT [Suspect]
     Indication: PULMONARY FIBROSIS
     Route: 048
     Dates: start: 20120501
  2. CELLCEPT [Suspect]
     Indication: OFF LABEL USE

REACTIONS (4)
  - MICTURITION URGENCY [None]
  - OFF LABEL USE [None]
  - ANXIETY [None]
  - DEPRESSION [None]
